FAERS Safety Report 9964949 (Version 1)
Quarter: 2014Q1

REPORT INFORMATION
  Report Type: Report from Study
  Country: US (occurrence: US)
  Receive Date: 20140305
  Receipt Date: 20140305
  Transmission Date: 20141002
  Serious: No
  Sender: FDA-Public Use
  Company Number: US-ABBVIE-13P-163-1127990-00

PATIENT
  Age: 24 Year
  Sex: Female

DRUGS (6)
  1. HUMIRA [Suspect]
     Indication: CROHN^S DISEASE
     Dates: start: 20130712, end: 20130712
  2. HUMIRA [Suspect]
     Dates: start: 20130726, end: 20130726
  3. HUMIRA [Suspect]
     Dates: start: 20130727, end: 20130727
  4. HUMIRA [Suspect]
  5. LORAZEPAM [Concomitant]
     Indication: SLEEP DISORDER THERAPY
  6. BIRTH CONTROL IMPLANT [Concomitant]
     Indication: CONTRACEPTION

REACTIONS (1)
  - Somnolence [Recovered/Resolved]
